FAERS Safety Report 17677704 (Version 2)
Quarter: 2020Q2

REPORT INFORMATION
  Report Type: Spontaneous
  Country: IT (occurrence: IT)
  Receive Date: 20200416
  Receipt Date: 20200421
  Transmission Date: 20200714
  Serious: Yes (Hospitalization, Other)
  Sender: FDA-Public Use
  Company Number: IT-009507513-2004ITA003350

PATIENT
  Age: 66 Year
  Sex: Male
  Weight: 62 kg

DRUGS (6)
  1. CISPLATIN. [Concomitant]
     Active Substance: CISPLATIN
     Indication: LUNG CANCER METASTATIC
     Dosage: 75 MG/MQ EVERY 21 DAYS
     Route: 042
  2. PEMETREXED DISODIUM [Concomitant]
     Active Substance: PEMETREXED DISODIUM
     Indication: LUNG CANCER METASTATIC
     Dosage: 500 MG/MQ EVERY 21 DAYS
     Route: 042
  3. PEMBROLIZUMAB. [Suspect]
     Active Substance: PEMBROLIZUMAB
     Indication: LUNG CANCER METASTATIC
     Dosage: 200 MG EVERY 21 DAYS
     Route: 042
     Dates: start: 20200403
  4. PEMBROLIZUMAB. [Suspect]
     Active Substance: PEMBROLIZUMAB
     Indication: ADENOCARCINOMA
     Dosage: 200 MG EVERY 21 DAYS
     Route: 042
     Dates: start: 20200313
  5. CISPLATIN. [Concomitant]
     Active Substance: CISPLATIN
     Indication: ADENOCARCINOMA
     Dosage: 75 MG/MQ EVERY 21 DAYS
     Route: 042
     Dates: start: 20200313
  6. PEMETREXED DISODIUM [Concomitant]
     Active Substance: PEMETREXED DISODIUM
     Indication: ADENOCARCINOMA
     Dosage: 500 MG/MQ EVERY 21 DAYS
     Route: 042
     Dates: start: 20200313

REACTIONS (1)
  - Epilepsy [Recovered/Resolved]

NARRATIVE: CASE EVENT DATE: 20200408
